FAERS Safety Report 7905937-4 (Version None)
Quarter: 2011Q4

REPORT INFORMATION
  Report Type: 
  Country: None (occurrence: None)
  Receive Date: 20111108
  Receipt Date: 20111024
  Transmission Date: 20120403
  Serious: Yes (Life-Threatening, Hospitalization, Other)
  Sender: FDA-Public Use
  Company Number: 2011MA015701

PATIENT
  Age: 44 Year
  Sex: Female

DRUGS (6)
  1. HEPARIN [Suspect]
  2. ANTACIDS [Concomitant]
  3. PAREGORIC W/ 1% NALOXONE SOLUTION [Suspect]
     Indication: ABDOMINAL PAIN UPPER
     Dosage: 47 MG;PRN;IV
     Route: 042
  4. INSULIN [Suspect]
     Dosage: SC
     Route: 058
  5. HYDROCHLOROTHIAZIDE [Concomitant]
  6. PREV MEDS [Concomitant]

REACTIONS (7)
  - CARDIOGENIC SHOCK [None]
  - RESPIRATORY ACIDOSIS [None]
  - INCORRECT DOSE ADMINISTERED [None]
  - PULMONARY ARTERIAL PRESSURE INCREASED [None]
  - ATRIAL HYPERTROPHY [None]
  - METABOLIC ACIDOSIS [None]
  - EJECTION FRACTION DECREASED [None]
